FAERS Safety Report 5826561-3 (Version None)
Quarter: 2008Q3

REPORT INFORMATION
  Report Type: 
  Country: None (occurrence: None)
  Receive Date: 20080729
  Receipt Date: 20080722
  Transmission Date: 20090109
  Serious: Yes (Hospitalization)
  Sender: FDA-Public Use
  Company Number: US-ELI_LILLY_AND_COMPANY-US200807004887

PATIENT

DRUGS (3)
  1. HUMALOG [Suspect]
     Dosage: UNK, UNK
     Route: 064
     Dates: start: 20070701, end: 20071001
  2. HUMALOG [Suspect]
     Route: 064
  3. HUMULIN N [Suspect]
     Route: 064

REACTIONS (2)
  - DRUG EXPOSURE DURING PREGNANCY [None]
  - PREMATURE BABY [None]
